FAERS Safety Report 5988741-6 (Version None)
Quarter: 2008Q4

REPORT INFORMATION
  Report Type: 
  Country: None (occurrence: None)
  Receive Date: 20081210
  Receipt Date: 20081202
  Transmission Date: 20090506
  Serious: Yes (Hospitalization)
  Sender: FDA-Public Use
  Company Number: PHHY2008GB30672

PATIENT
  Sex: Male

DRUGS (7)
  1. ZOMETA [Suspect]
     Indication: PROPHYLAXIS
     Dosage: UNK
     Dates: end: 20061001
  2. ACETYLSALICYLIC ACID SRT [Concomitant]
     Dosage: 75 MG/DAY
     Route: 048
  3. BISOPROLOL FUMARATE [Concomitant]
     Dosage: 1.25 MG/DAY
     Route: 048
  4. FLUOXETINE [Concomitant]
     Dosage: 20 MG DAILY
     Route: 048
  5. ISOSORBIDE MONONITRATE [Concomitant]
     Dosage: 30 MG DAILY
     Route: 048
  6. QUININE SULPHATE [Concomitant]
     Dosage: 300 MG DAILY
     Route: 048
  7. SIMVASTATIN [Concomitant]
     Dosage: 40 MG DAILY
     Route: 048

REACTIONS (1)
  - OSTEONECROSIS [None]
